FAERS Safety Report 21964921 (Version 1)
Quarter: 2023Q1

REPORT INFORMATION
  Report Type: Report from Study
  Country: US (occurrence: US)
  Receive Date: 20230207
  Receipt Date: 20230207
  Transmission Date: 20230418
  Serious: Yes (Hospitalization)
  Sender: FDA-Public Use
  Company Number: US-ABBVIE-4293922

PATIENT
  Age: 33 Year
  Sex: Female
  Weight: 77 kg

DRUGS (7)
  1. HUMIRA [Suspect]
     Active Substance: ADALIMUMAB
     Indication: Uveitis
     Route: 058
  2. HUMIRA [Suspect]
     Active Substance: ADALIMUMAB
     Indication: Rheumatoid arthritis
  3. METHOTREXATE [Concomitant]
     Active Substance: METHOTREXATE
     Indication: Rheumatoid arthritis
  4. ASPIRIN [Concomitant]
     Active Substance: ASPIRIN
     Indication: Ischaemic stroke
  5. FOLIC ACID [Concomitant]
     Active Substance: FOLIC ACID
     Indication: Rheumatoid arthritis
  6. LORATADINE [Concomitant]
     Active Substance: LORATADINE
     Indication: Product used for unknown indication
  7. BUDESONIDE [Concomitant]
     Active Substance: BUDESONIDE
     Indication: Product used for unknown indication

REACTIONS (10)
  - Ischaemic stroke [Recovered/Resolved]
  - Tonsillar hypertrophy [Recovering/Resolving]
  - Immunodeficiency [Recovered/Resolved]
  - Malaise [Recovering/Resolving]
  - Pain [Recovered/Resolved]
  - Lip injury [Recovered/Resolved]
  - Aphonia [Recovering/Resolving]
  - COVID-19 [Recovered/Resolved]
  - Swelling face [Recovered/Resolved]
  - Hyperhidrosis [Recovered/Resolved]

NARRATIVE: CASE EVENT DATE: 20211201
